FAERS Safety Report 6915637-5 (Version None)
Quarter: 2010Q3

REPORT INFORMATION
  Report Type: 
  Country: None (occurrence: None)
  Receive Date: 20100810
  Receipt Date: 20100727
  Transmission Date: 20110219
  Serious: Yes (Other)
  Sender: FDA-Public Use
  Company Number: ES-RANBAXY-2010RR-36565

PATIENT
  Age: 50 Year
  Sex: Female

DRUGS (3)
  1. IBUPROFEN [Suspect]
     Indication: ACUTE SINUSITIS
     Dosage: UNK
     Dates: start: 20050601
  2. ADRENALINE [Suspect]
     Dosage: 1 MG, UNK
     Route: 058
  3. AMOXICILLIN AND CLAVULANATE POTASSIUM [Concomitant]
     Dosage: UNK
     Dates: start: 20050601

REACTIONS (1)
  - KOUNIS SYNDROME [None]
